FAERS Safety Report 8543364 (Version 3)
Quarter: 2012Q4

REPORT INFORMATION
  Report Type: Report from Study
  Country: DE (occurrence: IT)
  Receive Date: 20120502
  Receipt Date: 20120914
  Transmission Date: 20130627
  Serious: Yes (Hospitalization)
  Sender: FDA-Public Use
  Company Number: IT-BRISTOL-MYERS SQUIBB COMPANY-16560468

PATIENT
  Age: 52 Year
  Sex: Female
  Weight: 82 kg

DRUGS (8)
  1. CETUXIMAB [Suspect]
     Indication: COLORECTAL CANCER
     Dosage: Most recent dose on 3Apr2012
     Dates: start: 20120403
  2. 5-FLUOROURACIL [Suspect]
     Indication: COLORECTAL CANCER
     Dosage: Most recent dose on 3Apr2012
     Dates: start: 20120403
  3. LEUCOVORIN [Suspect]
     Indication: COLORECTAL CANCER
     Dosage: Most recent dose on 3Apr2012
     Dates: start: 20120403
  4. IRINOTECAN [Suspect]
     Indication: COLORECTAL CANCER
     Dosage: Most recent dose on 3Apr2012
     Dates: start: 20120403
  5. OXALIPLATIN [Suspect]
     Indication: COLORECTAL CANCER
     Dosage: Most recent dose on 3Apr2012
     Dates: start: 20120403
  6. ZOFRAN [Concomitant]
     Indication: ANTIEMETIC SUPPORTIVE CARE
     Dosage: 03-03Apr12
04-05Apr12,Route:Oral
     Route: 042
     Dates: start: 20120403, end: 20120405
  7. SOLDESAM [Concomitant]
     Indication: ANTIEMETIC SUPPORTIVE CARE
     Dosage: 03-03Apr12
04-05Apr12,Route: oral
     Route: 042
     Dates: start: 20120403, end: 20120405
  8. TRIMETON [Concomitant]
     Indication: ANTIALLERGIC THERAPY
     Route: 042
     Dates: start: 20120403, end: 20120403

REACTIONS (2)
  - Syncope [Recovered/Resolved]
  - Anaemia [Recovered/Resolved]
